FAERS Safety Report 16403981 (Version 1)
Quarter: 2019Q3

REPORT INFORMATION
  Report Type: Spontaneous
  Country: US (occurrence: US)
  Receive Date: 20190606
  Receipt Date: 20190606
  Transmission Date: 20191004
  Serious: No
  Sender: FDA-Public Use
  Company Number: None

PATIENT
  Age: 73 Year
  Sex: Male
  Weight: 94.5 kg

DRUGS (1)
  1. TAPERDEX 12-DAY [Suspect]
     Active Substance: DEXAMETHASONE
     Indication: JOINT SWELLING

REACTIONS (2)
  - Abdominal distension [None]
  - Bowel movement irregularity [None]

NARRATIVE: CASE EVENT DATE: 20190510
